FAERS Safety Report 13956962 (Version 1)
Quarter: 2017Q3

REPORT INFORMATION
  Report Type: Spontaneous
  Country: PE (occurrence: PE)
  Receive Date: 20170911
  Receipt Date: 20170911
  Transmission Date: 20171128
  Serious: Yes (Hospitalization, Other)
  Sender: FDA-Public Use
  Company Number: PHHY2017PE133675

PATIENT
  Sex: Female

DRUGS (2)
  1. ENTRESTO [Suspect]
     Active Substance: SACUBITRIL\VALSARTAN
     Dosage: 200 MG QD (2 OF 50 MG IN THE MORNING AND 2 OF 50 MG AT NIGHT)
     Route: 065
  2. ENTRESTO [Suspect]
     Active Substance: SACUBITRIL\VALSARTAN
     Indication: PRODUCT USED FOR UNKNOWN INDICATION
     Dosage: 100 MG, QD (1 OF 50 MG  IN THE MORNING AND 1 OF 50 MG AT NIGHT)
     Route: 065

REACTIONS (6)
  - Cardiac failure [Unknown]
  - Fluid retention [Unknown]
  - Infarction [Unknown]
  - Blood cholesterol abnormal [Unknown]
  - Malaise [Unknown]
  - Fatigue [Unknown]
